FAERS Safety Report 8781341 (Version 2)
Quarter: 2012Q4

REPORT INFORMATION
  Report Type: 
  Country: TR (occurrence: TR)
  Receive Date: 20120913
  Receipt Date: 20120918
  Transmission Date: 20130627
  Serious: Yes (Other)
  Sender: FDA-Public Use
  Company Number: PHHY2012TR079249

PATIENT
  Age: 68 Year
  Sex: Male
  Weight: 86 kg

DRUGS (3)
  1. SANDOSTATIN LAR [Suspect]
     Indication: METASTASES TO GALLBLADDER
     Dosage: 30 mg, QMO
     Route: 030
     Dates: start: 20120221, end: 20120625
  2. CASODEX [Concomitant]
     Indication: PROSTATE CANCER METASTATIC
     Dosage: 150 mg, UNK
     Dates: start: 201202, end: 201205
  3. ZOLADEX [Concomitant]
     Dosage: UNK UKN, UNK
     Dates: start: 201202, end: 201205

REACTIONS (2)
  - Muscular weakness [Recovered/Resolved]
  - Blood creatine phosphokinase increased [Unknown]
